FAERS Safety Report 5829703-9 (Version None)
Quarter: 2008Q3

REPORT INFORMATION
  Report Type: 
  Country: None (occurrence: None)
  Receive Date: 20080717
  Receipt Date: 20080627
  Transmission Date: 20090109
  Serious: Yes (Other)
  Sender: FDA-Public Use
  Company Number: 200712608

PATIENT
  Age: 62 Year
  Sex: Male
  Weight: 96.1626 kg

DRUGS (5)
  1. VIVAGLOBIN [Suspect]
     Indication: IMMUNODEFICIENCY COMMON VARIABLE
     Dosage: 12.8 G Q1W SC; 12.5 G Q1W SC; SC; SC
     Route: 058
     Dates: start: 20071212, end: 20071212
  2. VIVAGLOBIN [Suspect]
     Indication: IMMUNODEFICIENCY COMMON VARIABLE
     Dosage: 12.8 G Q1W SC; 12.5 G Q1W SC; SC; SC
     Route: 058
     Dates: start: 20080625, end: 20080625
  3. VIVAGLOBIN [Suspect]
     Indication: IMMUNODEFICIENCY COMMON VARIABLE
     Dosage: 12.8 G Q1W SC; 12.5 G Q1W SC; SC; SC
     Route: 058
     Dates: start: 20080626, end: 20080626
  4. VIVAGLOBIN [Suspect]
     Indication: IMMUNODEFICIENCY COMMON VARIABLE
     Dosage: 12.8 G Q1W SC; 12.5 G Q1W SC; SC; SC
     Route: 058
     Dates: start: 20071101
  5. VIVAGLOBIN [Suspect]

REACTIONS (13)
  - ABSCESS [None]
  - ERYTHEMA [None]
  - HYPERSENSITIVITY [None]
  - INFLAMMATION [None]
  - INFUSION RELATED REACTION [None]
  - LOCAL SWELLING [None]
  - NODULE [None]
  - PAIN [None]
  - PAIN IN EXTREMITY [None]
  - PRURITUS [None]
  - SCAB [None]
  - SWELLING [None]
  - URTICARIA [None]
